FAERS Safety Report 10522933 (Version 2)
Quarter: 2014Q4

REPORT INFORMATION
  Report Type: Spontaneous
  Country: US (occurrence: US)
  Receive Date: 20141016
  Receipt Date: 20141016
  Transmission Date: 20150528
  Serious: Yes (Other)
  Sender: FDA-Public Use
  Company Number: US-GLAXOSMITHKLINE-A0870954A

PATIENT
  Sex: Female

DRUGS (1)
  1. AVANDIA [Suspect]
     Active Substance: ROSIGLITAZONE MALEATE
     Indication: DIABETES MELLITUS
     Dosage: 4 MG, QD
     Route: 048
     Dates: start: 199909, end: 200204

REACTIONS (6)
  - Cardiac failure [Unknown]
  - Tachycardia [Unknown]
  - Coronary artery disease [Unknown]
  - Cardiac failure congestive [Unknown]
  - Cerebrovascular accident [Not Recovered/Not Resolved]
  - Myocardial infarction [Unknown]
